FAERS Safety Report 5918293-8 (Version None)
Quarter: 2008Q4

REPORT INFORMATION
  Report Type: 
  Country: None (occurrence: None)
  Receive Date: 20081010
  Receipt Date: 20080929
  Transmission Date: 20090506
  Serious: Yes (Hospitalization)
  Sender: FDA-Public Use
  Company Number: 200813639BCC

PATIENT
  Age: 57 Year
  Sex: Female
  Weight: 80.7403 kg

DRUGS (18)
  1. CITRACAL REGULAR 250MG PLUS D [Suspect]
     Indication: VITAMIN SUPPLEMENTATION
     Dosage: 2 DF, TOTAL DAILY
     Dates: start: 20080501
  2. CITRACAL PLUS MAGNESIUM [Suspect]
     Indication: VITAMIN SUPPLEMENTATION
     Dosage: 2 DF, TOTAL DAILY, 3 DF, TOTAL DAILY
     Dates: start: 20080501
  3. CITRACAL PLUS MAGNESIUM [Suspect]
     Indication: VITAMIN SUPPLEMENTATION
     Dosage: 2 DF, TOTAL DAILY, 3 DF, TOTAL DAILY
     Dates: start: 20080824
  4. CITRACAL PLUS MAGNESIUM [Suspect]
     Indication: VITAMIN SUPPLEMENTATION
     Dosage: 2 DF, TOTAL DAILY, 3 DF, TOTAL DAILY
     Dates: start: 20080826
  5. FLINTSTONES PLUS IRON [Suspect]
     Indication: VITAMIN SUPPLEMENTATION
     Dosage: 1 DF, TOTAL DAILY, 1 DF, ONCE
     Dates: start: 20080201, end: 20080817
  6. FLINTSTONES PLUS IRON [Suspect]
     Indication: VITAMIN SUPPLEMENTATION
     Dosage: 1 DF, TOTAL DAILY, 1 DF, ONCE
     Dates: start: 20080824
  7. FLINTSTONES PLUS IRON [Suspect]
     Indication: VITAMIN SUPPLEMENTATION
     Dosage: 1 DF, TOTAL DAILY, 1 DF, ONCE
     Dates: start: 20080826
  8. TRAZODONE HCL [Concomitant]
  9. HUMULIN N [Concomitant]
  10. HYDROCODONE BITARTRATE [Concomitant]
  11. OXYCODONE HCL [Concomitant]
  12. TIZANIDINE HCL [Concomitant]
  13. HUMALOG [Concomitant]
  14. CLONAZEPAM [Concomitant]
  15. FISH OIL [Concomitant]
  16. TWIN LABS ALLERGY D3 [Concomitant]
  17. POTASSIUM CHLORIDE [Concomitant]
  18. MAGNESIUM SULFATE [Concomitant]

REACTIONS (16)
  - ANGER [None]
  - BACK PAIN [None]
  - BODY TEMPERATURE DECREASED [None]
  - CHEST PAIN [None]
  - CONDITION AGGRAVATED [None]
  - DEPRESSION [None]
  - DIARRHOEA [None]
  - DRUG HYPERSENSITIVITY [None]
  - FALL [None]
  - FEELING ABNORMAL [None]
  - MOOD ALTERED [None]
  - NAUSEA [None]
  - POOR QUALITY SLEEP [None]
  - SUICIDE ATTEMPT [None]
  - THINKING ABNORMAL [None]
  - VOMITING [None]
